FAERS Safety Report 8033691-7 (Version None)
Quarter: 2012Q1

REPORT INFORMATION
  Report Type: 
  Country: None (occurrence: None)
  Receive Date: 20120110
  Receipt Date: 20120104
  Transmission Date: 20120608
  Serious: Yes (Hospitalization)
  Sender: FDA-Public Use
  Company Number: US-GLAXOSMITHKLINE-A0915667A

PATIENT
  Age: 66 Year
  Sex: Male

DRUGS (7)
  1. METOPROLOL SUCCINATE [Concomitant]
  2. LIPITOR [Concomitant]
  3. LOSARTAN POTASSIUM [Concomitant]
  4. GLIPIZIDE [Concomitant]
  5. OMEPRAZOLE [Concomitant]
  6. AMARYL [Concomitant]
  7. ROSIGLITAZONE MALEATE [Suspect]
     Indication: DIABETES MELLITUS
     Dosage: 4MG PER DAY
     Route: 048
     Dates: start: 20001201, end: 20060501

REACTIONS (7)
  - POLYCYTHAEMIA VERA [None]
  - MYOCARDIAL INFARCTION [None]
  - CARDIAC DISORDER [None]
  - CARDIAC FAILURE CONGESTIVE [None]
  - CARDIOMYOPATHY [None]
  - CEREBROVASCULAR ACCIDENT [None]
  - ARTERIOSCLEROSIS CORONARY ARTERY [None]
